FAERS Safety Report 10661407 (Version 1)
Quarter: 2014Q4

REPORT INFORMATION
  Report Type: Spontaneous
  Country: US (occurrence: None)
  Receive Date: 20141217
  Receipt Date: 20141217
  Transmission Date: 20150529
  Serious: Yes (Other)
  Sender: FDA-Public Use
  Company Number: None

PATIENT
  Age: 62 Year
  Sex: Female
  Weight: 61.24 kg

DRUGS (6)
  1. NEWPHASE COMPLETE DIETARY SUPLEMENT [Concomitant]
  2. ASPIRIN. [Concomitant]
     Active Substance: ASPIRIN
  3. ACETAMINOPHEN. [Concomitant]
     Active Substance: ACETAMINOPHEN
  4. BRINTILLEX [Suspect]
     Active Substance: VORTIOXETINE HYDROBROMIDE
     Indication: ANXIETY
     Dosage: 1 TABLET, QD, ORAL
     Route: 048
     Dates: start: 20141213, end: 20141213
  5. IBUPROFEN. [Concomitant]
     Active Substance: IBUPROFEN
  6. BRINTILLEX [Suspect]
     Active Substance: VORTIOXETINE HYDROBROMIDE
     Indication: POST-TRAUMATIC STRESS DISORDER
     Dosage: 1 TABLET, QD, ORAL
     Route: 048
     Dates: start: 20141213, end: 20141213

REACTIONS (8)
  - Screaming [None]
  - Tremor [None]
  - Hallucination, visual [None]
  - Choking sensation [None]
  - Somnolence [None]
  - Crying [None]
  - Conversion disorder [None]
  - Dizziness [None]

NARRATIVE: CASE EVENT DATE: 20141213
